FAERS Safety Report 23810785 (Version 1)
Quarter: 2024Q2

REPORT INFORMATION
  Report Type: Spontaneous
  Country: US (occurrence: None)
  Receive Date: 20240502
  Receipt Date: 20240502
  Transmission Date: 20240716
  Serious: No
  Sender: FDA-Public Use
  Company Number: None

PATIENT
  Age: 55 Year
  Sex: Male

DRUGS (1)
  1. QUTENZA [Suspect]
     Active Substance: CAPSAICIN
     Indication: Neuropathy peripheral
     Dosage: OTHER QUANTITY : 4 PATCHES;?
     Route: 061
     Dates: start: 20240104

REACTIONS (3)
  - Irritability [None]
  - Skin burning sensation [None]
  - Product complaint [None]
